FAERS Safety Report 7748978-2 (Version None)
Quarter: 2011Q3

REPORT INFORMATION
  Report Type: 
  Country: None (occurrence: None)
  Receive Date: 20110909
  Receipt Date: 20110826
  Transmission Date: 20111222
  Serious: Yes (Death, Other)
  Sender: FDA-Public Use
  Company Number: US-2011-10619

PATIENT
  Age: 24 Year
  Sex: Male

DRUGS (3)
  1. CYCLOPHOSPHAMIDE [Concomitant]
  2. GEMTUZUMAB OZOGAMICIN (GEMTUZUMAB OZOGAMICIN) [Suspect]
     Indication: ACUTE MYELOID LEUKAEMIA
  3. BUSULFEX [Suspect]
     Indication: ALLOGENIC BONE MARROW TRANSPLANTATION THERAPY
     Dosage: 6 MG/ML, DAILY DOSE, INTRAVENOUS
     Route: 042

REACTIONS (4)
  - HAEMATEMESIS [None]
  - DUODENAL ULCER HAEMORRHAGE [None]
  - VENOOCCLUSIVE LIVER DISEASE [None]
  - GRAFT VERSUS HOST DISEASE [None]
